FAERS Safety Report 23978545 (Version 1)
Quarter: 2024Q2

REPORT INFORMATION
  Report Type: Spontaneous
  Country: US (occurrence: US)
  Receive Date: 20240614
  Receipt Date: 20240614
  Transmission Date: 20240716
  Serious: No
  Sender: FDA-Public Use
  Company Number: US-BAUSCHBL-2024BNL028271

PATIENT
  Age: 81 Year
  Sex: Female
  Weight: 59.87 kg

DRUGS (1)
  1. XIIDRA [Suspect]
     Active Substance: LIFITEGRAST
     Indication: Dry eye
     Dosage: THE DOSAGE IS 1 DROP INTO EACH EYE TWICE DAILY
     Route: 047
     Dates: start: 202402

REACTIONS (4)
  - Nausea [Unknown]
  - Oropharyngeal discomfort [Unknown]
  - Accidental exposure to product [Unknown]
  - Exposure via skin contact [Unknown]

NARRATIVE: CASE EVENT DATE: 20240101
